FAERS Safety Report 16349812 (Version 1)
Quarter: 2019Q2

REPORT INFORMATION
  Report Type: Report from Study
  Country: DE (occurrence: DE)
  Receive Date: 20190523
  Receipt Date: 20190523
  Transmission Date: 20190711
  Serious: Yes (Death, Hospitalization)
  Sender: FDA-Public Use
  Company Number: DE-PFIZER INC-2019215821

PATIENT
  Age: 55 Year
  Sex: Female

DRUGS (36)
  1. EUNERPAN [Suspect]
     Active Substance: MELPERONE HYDROCHLORIDE
     Indication: SEDATION
     Dosage: UNK
     Route: 048
     Dates: start: 19970611, end: 19970622
  2. NOCTAMID [Suspect]
     Active Substance: LORMETAZEPAM
     Indication: SLEEP DISORDER
     Dosage: 2 MG, UNK
     Route: 048
     Dates: start: 19970608, end: 19970611
  3. RINGER LOESUNG [Concomitant]
     Indication: FLUID REPLACEMENT
     Route: 042
     Dates: start: 19970630, end: 19970707
  4. RIVOTRIL [Concomitant]
     Active Substance: CLONAZEPAM
     Indication: EPILEPSY
     Route: 042
     Dates: start: 19970701, end: 19970701
  5. TITANIUM. [Concomitant]
     Active Substance: TITANIUM
     Indication: COMPUTERISED TOMOGRAM
     Dosage: UNK
     Route: 042
     Dates: start: 19970603, end: 19970603
  6. EUNERPAN [Suspect]
     Active Substance: MELPERONE HYDROCHLORIDE
     Dosage: UNK
     Route: 048
     Dates: start: 19970625, end: 19970707
  7. REFOBACIN [Concomitant]
     Active Substance: GENTAMICIN SULFATE
     Indication: ABSCESS
     Dosage: UNK
     Route: 042
     Dates: start: 19970701, end: 19970701
  8. JONOSTERIL [Concomitant]
     Dosage: 500 ML, UNK
     Route: 042
     Dates: start: 19970603, end: 19970603
  9. ORFIRIL [Concomitant]
     Active Substance: VALPROATE SODIUM
     Indication: EPILEPSY
     Dosage: 150 MG, UNK
     Route: 048
     Dates: start: 19970701, end: 19970701
  10. JONOSTERIL [Concomitant]
     Dosage: 500 ML, UNK
     Route: 042
     Dates: start: 19970603, end: 19970603
  11. VANCOMYCIN [Concomitant]
     Active Substance: VANCOMYCIN
     Indication: ABSCESS
     Dosage: UNK
     Route: 042
     Dates: start: 19970701, end: 19970701
  12. FORTECORTIN [Concomitant]
     Active Substance: DEXAMETHASONE
     Indication: PROPHYLAXIS
     Dosage: UNK
     Route: 050
     Dates: start: 19970603, end: 19970707
  13. BACTRIM [Suspect]
     Active Substance: SULFAMETHOXAZOLE\TRIMETHOPRIM
     Indication: URINARY TRACT INFECTION
     Dosage: 1 DF, UNK
     Route: 048
     Dates: start: 19970608, end: 19970612
  14. PARACETAMOL [Concomitant]
     Active Substance: ACETAMINOPHEN
     Indication: PYREXIA
     Dosage: 1 G, UNK
     Route: 054
     Dates: start: 19970701, end: 19970701
  15. PHENHYDAN [Concomitant]
     Active Substance: PHENYTOIN
     Indication: EPILEPSY
     Dosage: UNK
     Route: 042
     Dates: start: 19970701, end: 19970701
  16. ATOSIL [Concomitant]
     Indication: SEDATION
     Dosage: UNK
     Route: 042
     Dates: start: 19970701, end: 19970701
  17. LAXOBERAL [Concomitant]
     Active Substance: SODIUM PICOSULFATE
     Indication: CONSTIPATION
     Dosage: 15 GTT, UNK
     Route: 048
     Dates: start: 19970604, end: 19970604
  18. CYTOTEC [Concomitant]
     Active Substance: MISOPROSTOL
     Indication: PROPHYLAXIS
     Dosage: 200 MG, UNK
     Route: 048
     Dates: start: 19970603, end: 19970707
  19. TAVOR (LORAZEPAM) [Suspect]
     Active Substance: LORAZEPAM
     Indication: NERVOUSNESS
     Dosage: 1 MG, UNK
     Route: 048
     Dates: start: 19970619, end: 19970707
  20. ZOFRAN [Suspect]
     Active Substance: ONDANSETRON HYDROCHLORIDE
     Dosage: 8 MG, UNK
     Route: 042
     Dates: start: 19970701, end: 19970701
  21. BACTRIM [Suspect]
     Active Substance: SULFAMETHOXAZOLE\TRIMETHOPRIM
     Dosage: 1 DF, UNK
     Route: 048
     Dates: start: 19970608, end: 19970612
  22. ZOFRAN [Suspect]
     Active Substance: ONDANSETRON HYDROCHLORIDE
     Indication: NAUSEA
     Dosage: UNK
     Route: 050
     Dates: start: 19970630, end: 19970630
  23. SPIZEF (CEFOTIAM HYDROCHLORIDE) [Suspect]
     Active Substance: CEFOTIAM HYDROCHLORIDE
     Indication: PNEUMONIA
     Dosage: 2 G, UNK
     Route: 042
     Dates: start: 19970630, end: 19970630
  24. JONOSTERIL [Concomitant]
     Indication: FLUID REPLACEMENT
     Dosage: 500 ML, UNK
     Route: 042
     Dates: start: 19970603, end: 19970603
  25. VALIUM [Concomitant]
     Active Substance: DIAZEPAM
     Indication: SEDATION
     Dosage: UNK
     Route: 048
     Dates: start: 19970603, end: 19970701
  26. PEPDUL [Concomitant]
     Active Substance: FAMOTIDINE
     Indication: PROPHYLAXIS
     Dosage: 1 DF, UNK
     Route: 048
     Dates: end: 19970619
  27. SAROTEN RETARD [Suspect]
     Active Substance: AMITRIPTYLINE
     Indication: DEPRESSION
     Dosage: 50 MG, UNK
     Route: 048
     Dates: start: 19970624, end: 19970707
  28. ZENTROPIL [Suspect]
     Active Substance: PHENYTOIN
     Indication: EPILEPSY
     Dosage: 1 DF, UNK
     Route: 048
     Dates: end: 19970707
  29. VALDISPERT [Suspect]
     Active Substance: HERBALS
     Indication: SEDATION
     Dosage: 1 DF, UNK
     Route: 048
     Dates: start: 19970626, end: 19970626
  30. CLAFORAN [Concomitant]
     Active Substance: CEFOTAXIME SODIUM
     Indication: ABSCESS
     Dosage: 2 G, UNK
     Route: 042
     Dates: start: 19970701, end: 19970701
  31. JONOSTERIL [Concomitant]
     Dosage: 500 ML, UNK
     Route: 042
     Dates: start: 19970603, end: 19970603
  32. NOVALGIN (METAMIZOLE SODIUM) [Concomitant]
     Active Substance: METAMIZOLE SODIUM
     Indication: PAIN PROPHYLAXIS
     Dosage: 2 ML, UNK
     Route: 042
     Dates: start: 19970701, end: 19970701
  33. CLEXANE [Suspect]
     Active Substance: ENOXAPARIN SODIUM
     Indication: THROMBOSIS PROPHYLAXIS
     Dosage: 0.2 ML, UNK
     Route: 058
     Dates: start: 19970612, end: 19970630
  34. VOMEX A [Suspect]
     Active Substance: DIMENHYDRINATE
     Indication: NAUSEA
     Dosage: 1 DF, UNK
     Route: 054
     Dates: start: 19970630, end: 19970630
  35. FOSFOCIN [Concomitant]
     Indication: ABSCESS
     Dosage: UNK
     Route: 042
     Dates: start: 19970701, end: 19970701
  36. EUGALAC [Concomitant]
     Indication: CONSTIPATION
     Dosage: UNK
     Route: 048
     Dates: start: 19970608, end: 19970612

REACTIONS (11)
  - Rash vesicular [Unknown]
  - Rash [Unknown]
  - Headache [Unknown]
  - Swelling face [Unknown]
  - Erythema [Unknown]
  - Genital rash [Unknown]
  - Lip swelling [Unknown]
  - Oedema mucosal [Unknown]
  - Toxic epidermal necrolysis [Fatal]
  - Cardiopulmonary failure [Fatal]
  - Pyrexia [Unknown]

NARRATIVE: CASE EVENT DATE: 19970630
